FAERS Safety Report 17768235 (Version 1)
Quarter: 2020Q2

REPORT INFORMATION
  Report Type: Spontaneous
  Country: KR (occurrence: KR)
  Receive Date: 20200511
  Receipt Date: 20200511
  Transmission Date: 20200714
  Serious: Yes (Death, Other)
  Sender: FDA-Public Use
  Company Number: KR-JAZZ-2020-KR-006255

PATIENT
  Age: 62 Year
  Sex: Male

DRUGS (1)
  1. DEFITELIO [Suspect]
     Active Substance: DEFIBROTIDE SODIUM
     Indication: VENOOCCLUSIVE DISEASE
     Dosage: 6.25 MILLIGRAM/KILOGRAM, QID
     Route: 042
     Dates: start: 20200423, end: 20200425

REACTIONS (4)
  - Graft versus host disease [Fatal]
  - Condition aggravated [Fatal]
  - Infection [Fatal]
  - Venoocclusive disease [Fatal]

NARRATIVE: CASE EVENT DATE: 202004
